FAERS Safety Report 6701293-8 (Version None)
Quarter: 2010Q2

REPORT INFORMATION
  Report Type: 
  Country: None (occurrence: None)
  Receive Date: 20100429
  Receipt Date: 20100426
  Transmission Date: 20101027
  Serious: Yes (Other)
  Sender: FDA-Public Use
  Company Number: US-ASTRAZENECA-2007UW11092

PATIENT
  Age: 608 Month
  Sex: Male
  Weight: 111.1 kg

DRUGS (18)
  1. SEROQUEL [Suspect]
     Indication: BIPOLAR DISORDER
     Dosage: 100-1000MG
     Route: 048
     Dates: start: 20020308, end: 20090101
  2. SEROQUEL [Suspect]
     Dosage: 400 - 1000 MG DAILY
     Route: 048
     Dates: start: 20040813
  3. INDERAL LA [Concomitant]
     Dosage: 60 - 80 MG DAILY
     Route: 048
     Dates: start: 20040813
  4. TOPAMAX [Concomitant]
     Dosage: 4 0 - 100 MG AT NIGHT
     Route: 048
     Dates: start: 20040101
  5. KLONOPIN [Concomitant]
     Dosage: 1 - 2 MG DAILY
     Route: 048
     Dates: start: 20040101
  6. KLONOPIN [Concomitant]
     Dates: start: 20010101
  7. REQUIP [Concomitant]
     Dosage: 1.5 - 2.5 MG DAILY
     Route: 048
     Dates: start: 20050411
  8. ALTACE [Concomitant]
     Route: 048
     Dates: start: 20050411
  9. PROZAC [Concomitant]
     Dosage: 10 - 40 MG DAILY
     Route: 048
     Dates: start: 20040101
  10. TRAZODONE HCL [Concomitant]
     Dosage: 100 - 200 MG DAILY
     Route: 048
     Dates: start: 20040813
  11. TRAZODONE HCL [Concomitant]
     Dates: start: 20010101
  12. EFFEXOR XR [Concomitant]
     Route: 048
     Dates: start: 20040813
  13. XANAX [Concomitant]
     Route: 048
     Dates: start: 20040813
  14. ZYPREXA [Concomitant]
     Indication: BIPOLAR DISORDER
     Dosage: 20-40MG
     Dates: start: 20020101
  15. ZOLOFT [Concomitant]
     Dates: start: 20040101
  16. REMERON [Concomitant]
     Route: 048
     Dates: start: 20070315
  17. BUSPAR [Concomitant]
     Route: 048
     Dates: start: 20070315
  18. CELEXA [Concomitant]
     Dates: start: 20010101

REACTIONS (8)
  - DIABETES MELLITUS [None]
  - DIABETES MELLITUS INADEQUATE CONTROL [None]
  - DIABETIC FOOT [None]
  - DIABETIC KETOACIDOSIS [None]
  - DIABETIC NEUROPATHY [None]
  - OBESITY [None]
  - OVERWEIGHT [None]
  - TYPE 2 DIABETES MELLITUS [None]
